FAERS Safety Report 4350241-7 (Version None)
Quarter: 2004Q2

REPORT INFORMATION
  Report Type: 
  Country: None (occurrence: None)
  Receive Date: 20040428
  Receipt Date: 20040405
  Transmission Date: 20050107
  Serious: Yes (Hospitalization)
  Sender: FDA-Public Use
  Company Number: 7850

PATIENT
  Age: 75 Year
  Sex: Male

DRUGS (2)
  1. LEUCOVORIN CALCIUM [Suspect]
     Indication: GASTRIC CANCER
     Dosage: 75 MG PO
     Route: 048
     Dates: start: 20040219, end: 20040317
  2. UFT [Suspect]
     Indication: GASTRIC CANCER
     Dosage: 450 MG PO
     Route: 048
     Dates: start: 20040219, end: 20040317

REACTIONS (4)
  - ANOREXIA [None]
  - BLOOD POTASSIUM DECREASED [None]
  - DIARRHOEA [None]
  - MALAISE [None]
